FAERS Safety Report 11199248 (Version 1)
Quarter: 2015Q2

REPORT INFORMATION
  Report Type: Spontaneous
  Country: US (occurrence: US)
  Receive Date: 20150618
  Receipt Date: 20150618
  Transmission Date: 20150821
  Serious: No
  Sender: FDA-Public Use
  Company Number: US-PFIZER INC-2015198890

PATIENT
  Sex: Female

DRUGS (2)
  1. ADVIL CONGESTION RELIEF [Suspect]
     Active Substance: IBUPROFEN\PHENYLEPHRINE HYDROCHLORIDE
     Indication: UPPER RESPIRATORY TRACT CONGESTION
     Dosage: UNK
     Dates: start: 20150610
  2. ADVIL CONGESTION RELIEF [Suspect]
     Active Substance: IBUPROFEN\PHENYLEPHRINE HYDROCHLORIDE
     Indication: NASOPHARYNGITIS

REACTIONS (7)
  - Dizziness [Unknown]
  - Condition aggravated [Unknown]
  - Feeling abnormal [Unknown]
  - Product quality issue [Unknown]
  - Nausea [Unknown]
  - Poor quality sleep [Unknown]
  - Insomnia [Unknown]

NARRATIVE: CASE EVENT DATE: 201506
